FAERS Safety Report 8617142-7 (Version None)
Quarter: 2012Q3

REPORT INFORMATION
  Report Type: 
  Country: None (occurrence: None)
  Receive Date: 20120823
  Receipt Date: 20120821
  Transmission Date: 20120928
  Serious: Yes (Other)
  Sender: FDA-Public Use
  Company Number: US-PFIZER INC-2012148599

PATIENT
  Age: 52 Year
  Sex: Female

DRUGS (2)
  1. EPIPEN [Suspect]
     Indication: SWELLING
     Dosage: 0.3 MG/0.3 ML, PRN
     Route: 030
  2. EPIPEN [Suspect]
     Indication: ARTHROPOD STING

REACTIONS (2)
  - PRODUCT COLOUR ISSUE [None]
  - DRUG INEFFECTIVE [None]
